FAERS Safety Report 5257168-7 (Version None)
Quarter: 2007Q1

REPORT INFORMATION
  Report Type: 
  Country: None (occurrence: None)
  Receive Date: 20070305
  Receipt Date: 20070109
  Transmission Date: 20070707
  Serious: Yes (Other)
  Sender: FDA-Public Use
  Company Number: 2006SP006789

PATIENT
  Age: 20 Year
  Sex: Male
  Weight: 51 kg

DRUGS (5)
  1. CLARITYNE REDITABS (LORATADINE) [Suspect]
     Indication: RHINITIS ALLERGIC
     Dosage: 10 MG; QD; PO
     Route: 048
     Dates: start: 20061102, end: 20061113
  2. CLARITHROMYCIN [Suspect]
     Indication: SINUSITIS
     Dosage: 200 MG; QD; PO
     Route: 048
     Dates: start: 20061102, end: 20061113
  3. MUCODYNE [Concomitant]
  4. FLUNASE [Concomitant]
  5. DASEN [Concomitant]

REACTIONS (10)
  - ASTHENIA [None]
  - CHILLS [None]
  - DIZZINESS [None]
  - FALL [None]
  - GRIP STRENGTH DECREASED [None]
  - HEADACHE [None]
  - HYPOTENSION [None]
  - MYALGIA [None]
  - NAUSEA [None]
  - POSTURE ABNORMAL [None]
